FAERS Safety Report 14900001 (Version 1)
Quarter: 2018Q2

REPORT INFORMATION
  Report Type: Spontaneous
  Country: US (occurrence: US)
  Receive Date: 20180516
  Receipt Date: 20180516
  Transmission Date: 20180711
  Serious: No
  Sender: FDA-Public Use
  Company Number: US-TEVA-2018-US-887751

PATIENT
  Age: 3 Year
  Sex: Female

DRUGS (2)
  1. IMATINIB [Suspect]
     Active Substance: IMATINIB
     Indication: FIBRODYSPLASIA OSSIFICANS PROGRESSIVA
     Dosage: INCREASED DOSE
     Route: 065
  2. IMATINIB [Suspect]
     Active Substance: IMATINIB
     Indication: FIBRODYSPLASIA OSSIFICANS PROGRESSIVA
     Dosage: THE DOSE WAS INCREASED DUE TO RECURRENCE OF FLARE-UPS
     Route: 065

REACTIONS (1)
  - Off label use [Recovered/Resolved]
